FAERS Safety Report 9811689 (Version 1)
Quarter: 2014Q1

REPORT INFORMATION
  Report Type: Spontaneous
  Country: US (occurrence: US)
  Receive Date: 20140110
  Receipt Date: 20140110
  Transmission Date: 20141002
  Serious: Yes (Death)
  Sender: FDA-Public Use
  Company Number: US-SANOFI-AVENTIS-2013SA051595

PATIENT
  Age: 79 Year
  Sex: Female

DRUGS (3)
  1. LOVENOX [Suspect]
     Dosage: LOVENOX 30 MG SC WAS GIVEN THE MORNING OF SURGERY (REASONABLY CLOSE TO 2H?PREOP)
     Route: 058
  2. PLAVIX [Suspect]
  3. ASPIRIN [Suspect]

REACTIONS (2)
  - Post procedural haemorrhage [Fatal]
  - Hypotension [Unknown]
